FAERS Safety Report 5566539-0 (Version None)
Quarter: 2007Q4

REPORT INFORMATION
  Report Type: 
  Country: None (occurrence: None)
  Receive Date: 20071219
  Receipt Date: 20071214
  Transmission Date: 20080405
  Serious: Yes (Life-Threatening)
  Sender: FDA-Public Use
  Company Number: FR-JNJFOC-20071204390

PATIENT
  Age: 83 Year
  Sex: Female

DRUGS (8)
  1. CAELYX [Suspect]
     Indication: DRUG USE FOR UNKNOWN INDICATION
     Dosage: FIRST CURE
     Route: 042
     Dates: start: 20070801, end: 20071003
  2. CYCLOPHOSPHAMIDE [Suspect]
     Indication: DRUG USE FOR UNKNOWN INDICATION
     Dosage: FIRST CURE
     Route: 042
  3. MABTHERA [Suspect]
     Indication: DRUG USE FOR UNKNOWN INDICATION
     Dosage: FIRST CURE
     Route: 042
     Dates: start: 20070801, end: 20071003
  4. ONCOVIN [Suspect]
     Indication: DRUG USE FOR UNKNOWN INDICATION
     Dosage: FIRST CURE
     Route: 042
  5. ELDISINE [Suspect]
     Indication: DRUG USE FOR UNKNOWN INDICATION
     Route: 042
     Dates: start: 20070919, end: 20071003
  6. GRANOCYTE [Suspect]
     Indication: DRUG USE FOR UNKNOWN INDICATION
     Route: 058
  7. ZOPHREN [Suspect]
     Indication: DRUG USE FOR UNKNOWN INDICATION
     Route: 042
  8. SOLUPRED [Concomitant]
     Route: 048

REACTIONS (4)
  - DYSPNOEA [None]
  - HYPOXIA [None]
  - INTERSTITIAL LUNG DISEASE [None]
  - PYREXIA [None]
